FAERS Safety Report 4625196-8 (Version None)
Quarter: 2005Q2

REPORT INFORMATION
  Report Type: 
  Country: None (occurrence: None)
  Receive Date: 20050325
  Receipt Date: 20041214
  Transmission Date: 20051028
  Serious: No
  Sender: FDA-Public Use
  Company Number: US_0411108122

PATIENT
  Age: 77 Year
  Sex: Female

DRUGS (4)
  1. FORTEO [Suspect]
     Indication: OSTEOPOROSIS
     Dates: start: 20041111
  2. COUMADIN [Concomitant]
  3. LANOXIN (DIGOXIN STREULI) [Concomitant]
  4. DILACOR (DIGOXIN STREULI) [Concomitant]

REACTIONS (3)
  - DIZZINESS [None]
  - FEAR [None]
  - NAUSEA [None]
